FAERS Safety Report 6907011-2 (Version None)
Quarter: 2010Q3

REPORT INFORMATION
  Report Type: 
  Country: None (occurrence: None)
  Receive Date: 20100804
  Receipt Date: 20080604
  Transmission Date: 20110219
  Serious: Yes (Hospitalization)
  Sender: FDA-Public Use
  Company Number: US-PFIZER INC-2008047196

PATIENT
  Sex: Male
  Weight: 87.5 kg

DRUGS (1)
  1. MARAVIROC [Suspect]
     Indication: HIV TEST POSITIVE
     Route: 048
     Dates: start: 20070501

REACTIONS (1)
  - PARAGANGLION NEOPLASM [None]
